FAERS Safety Report 25600945 (Version 2)
Quarter: 2025Q3

REPORT INFORMATION
  Report Type: Spontaneous
  Country: AU (occurrence: AU)
  Receive Date: 20250724
  Receipt Date: 20250801
  Transmission Date: 20251020
  Serious: Yes (Hospitalization)
  Sender: MYLAN
  Company Number: AU-MYLANLABS-2025M1061295

PATIENT
  Sex: Male

DRUGS (24)
  1. VALPROIC ACID [Suspect]
     Active Substance: VALPROIC ACID
     Indication: Generalised tonic-clonic seizure
     Dosage: 500 MILLIGRAM, TID
  2. OLANZAPINE [Suspect]
     Active Substance: OLANZAPINE
     Indication: Agitation
     Dosage: 5 MILLIGRAM, QD
  3. ONDANSETRON [Suspect]
     Active Substance: ONDANSETRON
     Indication: Vomiting
  4. METOCLOPRAMIDE [Suspect]
     Active Substance: METOCLOPRAMIDE
     Indication: Vomiting
  5. METOCLOPRAMIDE [Suspect]
     Active Substance: METOCLOPRAMIDE
  6. ONDANSETRON [Suspect]
     Active Substance: ONDANSETRON
     Indication: Vomiting
  7. DEXAMETHASONE [Suspect]
     Active Substance: DEXAMETHASONE
     Indication: Hyperinsulinaemic hypoglycaemia
     Dosage: 1 MILLIGRAM, QD
  8. DEXAMETHASONE [Suspect]
     Active Substance: DEXAMETHASONE
     Dosage: 1 MILLIGRAM, BID
  9. DEXAMETHASONE [Suspect]
     Active Substance: DEXAMETHASONE
     Dosage: 1 MILLIGRAM, QD
  10. HYDROCORTISONE [Suspect]
     Active Substance: HYDROCORTISONE
     Indication: Hyperinsulinaemic hypoglycaemia
     Dosage: 10 MILLIGRAM, AM
  11. DIAZOXIDE [Suspect]
     Active Substance: DIAZOXIDE
     Indication: Hyperinsulinaemic hypoglycaemia
     Dosage: 100 MILLIGRAM, TID
  12. DIAZOXIDE [Suspect]
     Active Substance: DIAZOXIDE
     Dosage: 400 MILLIGRAM, TID
  13. DIAZOXIDE [Suspect]
     Active Substance: DIAZOXIDE
     Dosage: 100 MILLIGRAM, BID
  14. HYDROCHLOROTHIAZIDE [Suspect]
     Active Substance: HYDROCHLOROTHIAZIDE
     Indication: Hyperinsulinaemic hypoglycaemia
     Dosage: 50 MILLIGRAM, QD
  15. CARBAMAZEPINE [Suspect]
     Active Substance: CARBAMAZEPINE
     Indication: Generalised tonic-clonic seizure
  16. HUMALOG MIX50/50 [Suspect]
     Active Substance: INSULIN LISPRO
     Indication: Hyperinsulinaemic hypoglycaemia
  17. GLUCAGON [Suspect]
     Active Substance: GLUCAGON
     Indication: Hyperinsulinaemic hypoglycaemia
  18. OCTREOTIDE [Concomitant]
     Active Substance: OCTREOTIDE
     Indication: Hyperinsulinaemic hypoglycaemia
  19. ACETAMINOPHEN [Concomitant]
     Active Substance: ACETAMINOPHEN
     Indication: Product used for unknown indication
     Dosage: 1330 MILLIGRAM, TID
  20. PREDNISOLONE [Concomitant]
     Active Substance: PREDNISOLONE
     Indication: Lower respiratory tract infection
  21. PROCHLORPERAZINE [Concomitant]
     Active Substance: PROCHLORPERAZINE
     Indication: Lower respiratory tract infection
  22. DEXTROSE [Concomitant]
     Active Substance: DEXTROSE MONOHYDRATE
     Indication: Hyperinsulinaemic hypoglycaemia
  23. DEXTROSE [Concomitant]
     Active Substance: DEXTROSE MONOHYDRATE
  24. DEXTROSE [Concomitant]
     Active Substance: DEXTROSE MONOHYDRATE
     Indication: Hyperinsulinaemic hypoglycaemia
     Dosage: 100 MILLILITER, QH

REACTIONS (2)
  - Drug ineffective [Unknown]
  - Off label use [Unknown]
